FAERS Safety Report 12454441 (Version 1)
Quarter: 2016Q2

REPORT INFORMATION
  Report Type: Spontaneous
  Country: US (occurrence: None)
  Receive Date: 20160609
  Receipt Date: 20160609
  Transmission Date: 20160815
  Serious: Yes (Hospitalization)
  Sender: FDA-Public Use
  Company Number: None

PATIENT
  Age: 40 Year
  Sex: Male
  Weight: 123 kg

DRUGS (1)
  1. FARXIGA [Suspect]
     Active Substance: DAPAGLIFLOZIN PROPANEDIOL
     Indication: DIABETES MELLITUS
     Route: 048
     Dates: start: 20160603, end: 20160605

REACTIONS (7)
  - Chest pain [None]
  - Vision blurred [None]
  - Dyspnoea [None]
  - Headache [None]
  - Arthralgia [None]
  - Diabetic ketoacidosis [None]
  - Cough [None]

NARRATIVE: CASE EVENT DATE: 20160603
